FAERS Safety Report 8814565 (Version 1)
Quarter: 2012Q4

REPORT INFORMATION
  Report Type: Spontaneous
  Country: US (occurrence: None)
  Receive Date: 20120925
  Receipt Date: 20120925
  Transmission Date: 20130627
  Serious: Yes (Death)
  Sender: FDA-Public Use
  Company Number: ADR-2012-01742

PATIENT
  Age: 70 Year
  Sex: Male

DRUGS (2)
  1. LIORESAL [Suspect]
     Indication: SPASTICITY
  2. LIORESAL [Suspect]
     Indication: MULTIPLE SCLEROSIS

REACTIONS (1)
  - Acute respiratory failure [None]
